FAERS Safety Report 5109276-9 (Version None)
Quarter: 2006Q3

REPORT INFORMATION
  Report Type: 
  Country: None (occurrence: None)
  Receive Date: 20060920
  Receipt Date: 20051011
  Transmission Date: 20061208
  Serious: Yes (Other)
  Sender: FDA-Public Use
  Company Number: IE-GLAXOSMITHKLINE-B0438413A

PATIENT
  Sex: Male

DRUGS (1)
  1. NIQUITIN CQ LOZENGE [Suspect]
     Route: 002

REACTIONS (1)
  - DEPENDENCE [None]
